FAERS Safety Report 22851379 (Version 5)
Quarter: 2023Q4

REPORT INFORMATION
  Report Type: Spontaneous
  Country: IT (occurrence: IT)
  Receive Date: 20230822
  Receipt Date: 20231212
  Transmission Date: 20240109
  Serious: Yes (Death, Hospitalization, Disabling)
  Sender: FDA-Public Use
  Company Number: IT-BIOGEN-2023BI01219635

PATIENT
  Age: 58 Year
  Sex: Female
  Weight: 40 kg

DRUGS (3)
  1. TYSABRI [Suspect]
     Active Substance: NATALIZUMAB
     Indication: Multiple sclerosis
     Route: 050
     Dates: start: 20180516, end: 20200819
  2. TYSABRI [Suspect]
     Active Substance: NATALIZUMAB
     Dosage: STARTED AFTER 24 INFUSIONS
     Route: 050
     Dates: start: 20201014, end: 20230615
  3. PALEXIA [Concomitant]
     Active Substance: TAPENTADOL HYDROCHLORIDE
     Indication: Pain
     Dosage: 150 MG TWICE IN A DAY
     Route: 050
     Dates: start: 2020

REACTIONS (3)
  - Progressive multifocal leukoencephalopathy [Fatal]
  - Superinfection [Fatal]
  - Prescribed underdose [Recovered/Resolved]

NARRATIVE: CASE EVENT DATE: 20201014
